FAERS Safety Report 21610852 (Version 2)
Quarter: 2022Q4

REPORT INFORMATION
  Report Type: Spontaneous
  Country: TR (occurrence: TR)
  Receive Date: 20221117
  Receipt Date: 20221209
  Transmission Date: 20230113
  Serious: Yes (Other)
  Sender: FDA-Public Use
  Company Number: TR-TEVA-2022-TR-2828223

PATIENT
  Age: 15 Year
  Sex: Male

DRUGS (4)
  1. ARIPIPRAZOLE [Suspect]
     Active Substance: ARIPIPRAZOLE
     Indication: Paediatric acute-onset neuropsychiatric syndrome
     Dosage: 2.5 MILLIGRAM DAILY;
     Route: 065
  2. ARIPIPRAZOLE [Suspect]
     Active Substance: ARIPIPRAZOLE
     Indication: Obsessive-compulsive disorder
  3. AZITHROMYCIN [Suspect]
     Active Substance: AZITHROMYCIN
     Indication: Paediatric acute-onset neuropsychiatric syndrome
     Dosage: 500 MILLIGRAM DAILY; 3 DOSES
     Route: 065
  4. AZITHROMYCIN [Suspect]
     Active Substance: AZITHROMYCIN
     Indication: Obsessive-compulsive disorder
     Route: 065

REACTIONS (2)
  - Paediatric acute-onset neuropsychiatric syndrome [Recovering/Resolving]
  - Obsessive-compulsive disorder [Recovering/Resolving]
